FAERS Safety Report 9353794 (Version 2)
Quarter: 2013Q3

REPORT INFORMATION
  Report Type: Spontaneous
  Country: RS (occurrence: RS)
  Receive Date: 20130618
  Receipt Date: 20130715
  Transmission Date: 20140515
  Serious: Yes (Hospitalization, Other)
  Sender: FDA-Public Use
  Company Number: RS-009507513-1306SRB006272

PATIENT
  Age: 49 Year
  Sex: Female

DRUGS (3)
  1. VICTRELIS [Suspect]
     Indication: HEPATITIS C
     Dosage: 4 CAPSULES ON 8 HOURS, 2400 MG QD
     Route: 048
     Dates: start: 20130429, end: 20130612
  2. PEGINTRON [Suspect]
     Indication: HEPATITIS C
     Dosage: 100 MICROGRAM, QD
     Route: 058
     Dates: start: 20130401, end: 20130610
  3. REBETOL [Suspect]
     Indication: HEPATITIS C
     Dosage: 1000 MG, QD
     Route: 048
     Dates: start: 20130401, end: 20130612

REACTIONS (4)
  - Febrile neutropenia [Unknown]
  - Pancytopenia [Unknown]
  - Agranulocytosis [Unknown]
  - Anaemia [Recovering/Resolving]
